FAERS Safety Report 7399196-1 (Version None)
Quarter: 2011Q1

REPORT INFORMATION
  Report Type: 
  Country: None (occurrence: None)
  Receive Date: 20110328
  Receipt Date: 20110302
  Transmission Date: 20110831
  Serious: Yes (Hospitalization, Other)
  Sender: FDA-Public Use
  Company Number: AUR-APL-2011-00890

PATIENT
  Age: 59 Year
  Sex: Male
  Weight: 105 kg

DRUGS (15)
  1. METFORMIN HCL [Concomitant]
  2. METFORMIN HCL [Suspect]
     Dosage: 1000MG-BID-ORAL
     Route: 048
     Dates: start: 20070101
  3. INSULIN SQ [Concomitant]
  4. ATENOLOL [Suspect]
  5. SIMVASTATIN [Suspect]
     Dosage: 30MG-DAILY-ORAL
     Route: 048
     Dates: start: 20080101
  6. ENAHEXAL [Suspect]
     Dosage: 10MG-BID
  7. PROPRANOLOL [Concomitant]
  8. AVANDAMET [Concomitant]
  9. TORSEMIDE [Suspect]
     Dosage: 20MG(1/2PER DAY)
  10. ONGLYZA [Suspect]
     Indication: DIABETES MELLITUS
     Dosage: 1DF-DAILY-ORAL
     Route: 048
     Dates: start: 20100726
  11. SPIRONOLACTONE [Concomitant]
  12. FUROSEMIDE [Concomitant]
  13. AMLODIPINE BESYLATE [Suspect]
     Dosage: 10MG (1/2PER DAY)
  14. GODAMED [Suspect]
     Dosage: 1DF-DAILY
  15. CHLORTHALIDONE [Suspect]
     Dosage: 12.5MG - ^1 DD^

REACTIONS (20)
  - PROTHROMBIN TIME PROLONGED [None]
  - BLOOD ALBUMIN DECREASED [None]
  - BLOOD BILIRUBIN INCREASED [None]
  - HEPATIC CIRRHOSIS [None]
  - PLATELET COUNT DECREASED [None]
  - PORTAL HYPERTENSION [None]
  - AORTIC STENOSIS [None]
  - WAIST CIRCUMFERENCE INCREASED [None]
  - BLOOD GLUCOSE INCREASED [None]
  - VARICES OESOPHAGEAL [None]
  - PORTAL HYPERTENSIVE GASTROPATHY [None]
  - LIVER DISORDER [None]
  - GAMMA-GLUTAMYLTRANSFERASE INCREASED [None]
  - ESCHERICHIA SEPSIS [None]
  - PANCREATITIS [None]
  - ASPARTATE AMINOTRANSFERASE INCREASED [None]
  - BLOOD BILIRUBIN UNCONJUGATED INCREASED [None]
  - ASCITES [None]
  - BILIRUBIN CONJUGATED INCREASED [None]
  - URINARY TRACT INFECTION [None]
